FAERS Safety Report 25343756 (Version 1)
Quarter: 2025Q2

REPORT INFORMATION
  Report Type: Report from Study
  Country: US (occurrence: US)
  Receive Date: 20250521
  Receipt Date: 20250521
  Transmission Date: 20250717
  Serious: Yes (Other)
  Sender: ALEXION PHARMACEUTICALS
  Company Number: US-AstraZeneca-CH-00869943A

PATIENT

DRUGS (1)
  1. DAPAGLIFLOZIN [Suspect]
     Active Substance: DAPAGLIFLOZIN

REACTIONS (19)
  - Anxiety [Unknown]
  - Depression [Unknown]
  - Diabetes mellitus [Unknown]
  - Dyslipidaemia [Unknown]
  - Erectile dysfunction [Unknown]
  - Gastrooesophageal reflux disease [Unknown]
  - Blood cholesterol increased [Unknown]
  - Hyperlipidaemia [Unknown]
  - Hypertension [Unknown]
  - Spinal osteoarthritis [Unknown]
  - Androgen deficiency [Unknown]
  - Pharyngeal erythema [Unknown]
  - Insomnia [Unknown]
  - Haemorrhoids [Unknown]
  - Haemorrhoids [Unknown]
  - Rectal haemorrhage [Unknown]
  - Eustachian tube dysfunction [Unknown]
  - Myelopathy [Unknown]
  - Intervertebral disc disorder [Unknown]
